FAERS Safety Report 21077975 (Version 1)
Quarter: 2022Q3

REPORT INFORMATION
  Report Type: Report from Study
  Country: US (occurrence: US)
  Receive Date: 20220713
  Receipt Date: 20220713
  Transmission Date: 20221027
  Serious: No
  Sender: FDA-Public Use
  Company Number: US-VANDA PHARMACEUTICALS, INC-2021TASUS005388

PATIENT
  Sex: Female

DRUGS (9)
  1. HETLIOZ [Suspect]
     Active Substance: TASIMELTEON
     Indication: Smith-Magenis syndrome
     Dosage: 20 MILLIGRAM, QHS DAILY AT THE SAME TIME EACH NIGHT 1 HOUR BEFORE BEDTIME, WITHOUT FOOD
     Route: 048
     Dates: start: 20210527
  2. HETLIOZ [Suspect]
     Active Substance: TASIMELTEON
     Dosage: 20 MILLIGRAM, QHS, DAILY AT THE SAME TIME EACH NIGHT 1 HOUR BEFORE BEDTIME, WITHOUT FOOD
     Dates: start: 20210527, end: 20211201
  3. GUANFACINE [Concomitant]
     Active Substance: GUANFACINE
     Indication: Product used for unknown indication
  4. SERTRALINE [Concomitant]
     Active Substance: SERTRALINE HYDROCHLORIDE
     Indication: Product used for unknown indication
  5. ARIPIPRAZOLE [Concomitant]
     Active Substance: ARIPIPRAZOLE
     Indication: Product used for unknown indication
  6. BLISOVI 24 FE [Concomitant]
     Active Substance: ETHINYL ESTRADIOL\NORETHINDRONE ACETATE
     Indication: Product used for unknown indication
  7. MAGNESIUM [Concomitant]
     Active Substance: MAGNESIUM
     Indication: Product used for unknown indication
  8. PROBIOTICS NOS [Concomitant]
     Active Substance: PROBIOTICS NOS
     Indication: Product used for unknown indication
  9. PROBIOTICS NOS [Concomitant]
     Active Substance: PROBIOTICS NOS
     Dosage: UNK

REACTIONS (2)
  - Sleep disorder [Unknown]
  - Middle insomnia [Unknown]
